FAERS Safety Report 4309220-8 (Version None)
Quarter: 2004Q1

REPORT INFORMATION
  Report Type: 
  Country: None (occurrence: None)
  Receive Date: 20040301
  Receipt Date: 20040224
  Transmission Date: 20041129
  Serious: Yes (Life-Threatening, Hospitalization)
  Sender: FDA-Public Use
  Company Number: FRWYE602025FEB04

PATIENT
  Age: 60 Year
  Sex: Male

DRUGS (4)
  1. OXAZEPAM [Suspect]
     Dosage: ORAL
     Route: 048
     Dates: start: 20031107, end: 20031107
  2. ALCOHOL (ETHANOL, , 0) [Suspect]
     Dosage: ORAL
     Route: 048
     Dates: start: 20031107, end: 20031107
  3. EQUANIL [Suspect]
     Dosage: 12 G, ORAL
     Route: 048
     Dates: start: 20031107, end: 20031107
  4. TRANXENE [Suspect]
     Dosage: 600 MG, ORAL
     Route: 048
     Dates: start: 20031107, end: 20031107

REACTIONS (7)
  - COMA [None]
  - DELIRIUM TREMENS [None]
  - HYPOTHERMIA [None]
  - INTENTIONAL OVERDOSE [None]
  - PNEUMONIA ASPIRATION [None]
  - SUICIDE ATTEMPT [None]
  - VOMITING [None]
